FAERS Safety Report 5916955-X (Version None)
Quarter: 2008Q4

REPORT INFORMATION
  Report Type: 
  Country: None (occurrence: None)
  Receive Date: 20081013
  Receipt Date: 20081003
  Transmission Date: 20090506
  Serious: Yes (Life-Threatening)
  Sender: FDA-Public Use
  Company Number: BR-ASTRAZENECA-2008UW22040

PATIENT
  Age: 19 Year
  Sex: Female

DRUGS (1)
  1. SEROQUEL [Suspect]
     Indication: BIPOLAR DISORDER
     Route: 048
     Dates: start: 20070101

REACTIONS (2)
  - ARTERIAL THROMBOSIS LIMB [None]
  - PULMONARY EMBOLISM [None]
